FAERS Safety Report 9829652 (Version 2)
Quarter: 2014Q2

REPORT INFORMATION
  Report Type: Report from Study
  Country: GB (occurrence: GB)
  Receive Date: 20140120
  Receipt Date: 20140526
  Transmission Date: 20141212
  Serious: Yes (Hospitalization)
  Sender: FDA-Public Use
  Company Number: GB-ROCHE-1335338

PATIENT
  Age: 68 Year
  Sex: Female
  Weight: 62 kg

DRUGS (12)
  1. TOCILIZUMAB [Suspect]
     Indication: RHEUMATOID ARTHRITIS
     Dosage: DATE OF LAST DOSE PRIOR TO SAE: 11/DEC/2012
     Route: 065
     Dates: start: 20120918
  2. NAPROXEN [Concomitant]
     Route: 065
  3. FERROUS SULPHATE [Concomitant]
     Route: 065
     Dates: start: 20121225
  4. HYDROXYCHLOROQUINE [Concomitant]
     Route: 065
  5. PARACETAMOL [Concomitant]
     Route: 065
  6. GANFORT [Concomitant]
  7. BRIMONIDINE [Concomitant]
     Route: 065
  8. ADCAL - D3 [Concomitant]
  9. OMEPRAZOLE [Concomitant]
     Route: 065
  10. SENNA [Concomitant]
  11. TRAMADOL [Concomitant]
     Route: 065
  12. PREDNISOLONE [Concomitant]

REACTIONS (2)
  - Impaired healing [Not Recovered/Not Resolved]
  - Wound infection [Recovered/Resolved]
